FAERS Safety Report 10028483 (Version 1)
Quarter: 2014Q1

REPORT INFORMATION
  Report Type: Report from Study
  Country: CA (occurrence: CA)
  Receive Date: 20140321
  Receipt Date: 20140321
  Transmission Date: 20141002
  Serious: Yes (Hospitalization, Other)
  Sender: FDA-Public Use
  Company Number: CA-BRISTOL-MYERS SQUIBB COMPANY-20485777

PATIENT
  Age: 54 Year
  Sex: Female

DRUGS (4)
  1. ORENCIA [Suspect]
     Indication: PSORIASIS
     Dosage: 1 DF: 1000 UNITS NOS.
     Dates: start: 20110923
  2. AVAPRO [Concomitant]
  3. AMLODIPINE [Concomitant]
  4. AMLODIPINE [Concomitant]

REACTIONS (6)
  - Nephrolithiasis [Unknown]
  - Swelling [Unknown]
  - Pain [Unknown]
  - Pyrexia [Recovering/Resolving]
  - Chills [Recovering/Resolving]
  - Vomiting [Recovering/Resolving]
